FAERS Safety Report 16038129 (Version 3)
Quarter: 2019Q2

REPORT INFORMATION
  Report Type: Report from Study
  Country: IT (occurrence: IT)
  Receive Date: 20190305
  Receipt Date: 20190521
  Transmission Date: 20190711
  Serious: Yes (Hospitalization)
  Sender: FDA-Public Use
  Company Number: IT-ALLERGAN-1908236US

PATIENT
  Sex: Female

DRUGS (3)
  1. EN [Suspect]
     Active Substance: DELORAZEPAM
     Indication: DRUG ABUSE
     Dosage: 40 MG (IN TOTAL)
     Route: 048
     Dates: start: 20181219, end: 20181219
  2. LORAZEPAM. [Suspect]
     Active Substance: LORAZEPAM
     Indication: DRUG ABUSE
     Dosage: 20 MG (IN TOTAL)
     Route: 048
     Dates: start: 20181219, end: 20181219
  3. ESCITALOPRAM OXALATE UNK [Suspect]
     Active Substance: ESCITALOPRAM OXALATE
     Indication: DRUG ABUSE
     Dosage: IN TOTAL: OVERDOSE 300 MG
     Route: 048
     Dates: start: 20181219, end: 20181219

REACTIONS (4)
  - Slow speech [Recovering/Resolving]
  - Dry mouth [Recovering/Resolving]
  - Chest discomfort [Recovering/Resolving]
  - Intentional overdose [Unknown]

NARRATIVE: CASE EVENT DATE: 20181219
